FAERS Safety Report 16998843 (Version 1)
Quarter: 2019Q4

REPORT INFORMATION
  Report Type: Spontaneous
  Country: US (occurrence: US)
  Receive Date: 20191106
  Receipt Date: 20191106
  Transmission Date: 20200122
  Serious: Yes (Other)
  Sender: FDA-Public Use
  Company Number: US-MYLANLABS-2019M1102617

PATIENT
  Sex: Male
  Weight: 124 kg

DRUGS (2)
  1. OXYCODONE                          /00045603/ [Concomitant]
     Active Substance: OXYCODONE
  2. FENTANYL TRANSDERMAL SYSTEM [Suspect]
     Active Substance: FENTANYL
     Indication: CANCER PAIN
     Dosage: UNK UNK, Q3D
     Route: 062
     Dates: start: 20191012

REACTIONS (1)
  - Drug ineffective [Recovering/Resolving]

NARRATIVE: CASE EVENT DATE: 20191012
